FAERS Safety Report 17430241 (Version 4)
Quarter: 2020Q2

REPORT INFORMATION
  Report Type: Spontaneous
  Country: US (occurrence: US)
  Receive Date: 20200218
  Receipt Date: 20200413
  Transmission Date: 20200713
  Serious: No
  Sender: FDA-Public Use
  Company Number: US-PFIZER INC-2020069420

PATIENT
  Age: 79 Year
  Sex: Female
  Weight: 74.38 kg

DRUGS (5)
  1. PREMARIN [Suspect]
     Active Substance: ESTROGENS, CONJUGATED
     Indication: VULVOVAGINAL DRYNESS
     Dosage: UNK
  2. PREMARIN [Suspect]
     Active Substance: ESTROGENS, CONJUGATED
     Indication: VAGINAL INFECTION
     Dosage: UNK (2 X A WEEK (ONCE A DAY))
  3. PREMARIN [Suspect]
     Active Substance: ESTROGENS, CONJUGATED
     Dosage: UNK, DAILY (A SMALL AMOUNT TO URETHRAL AREA OUTSIDE OF VAGINA DAILY FOR A WEEK)
  4. PREMARIN [Suspect]
     Active Substance: ESTROGENS, CONJUGATED
     Indication: MENOPAUSE
     Dosage: UNK, 2X/WEEK
     Route: 067
  5. CALMOSEPTINE [Concomitant]
     Active Substance: MENTHOL\ZINC OXIDE
     Dosage: UNK, 2X/DAY

REACTIONS (5)
  - Vulvovaginal pain [Recovered/Resolved]
  - Intentional product misuse [Unknown]
  - Vulvovaginal pruritus [Unknown]
  - Vulvovaginal mycotic infection [Unknown]
  - Contraindicated product administered [Unknown]
